FAERS Safety Report 5589162-0 (Version None)
Quarter: 2007Q4

REPORT INFORMATION
  Report Type: 
  Country: None (occurrence: None)
  Receive Date: 20071212
  Receipt Date: 20070628
  Transmission Date: 20080405
  Serious: Yes (Death, Other)
  Sender: FDA-Public Use
  Company Number: USA-2007-0028106

PATIENT
  Sex: Male

DRUGS (1)
  1. OXYCONTIN [Suspect]
     Indication: MUSCLE RELAXANT THERAPY
     Dosage: ORAL
     Route: 048

REACTIONS (2)
  - DRUG ABUSE [None]
  - OVERDOSE [None]
